FAERS Safety Report 15848678 (Version 1)
Quarter: 2019Q1

REPORT INFORMATION
  Report Type: Spontaneous
  Country: CN (occurrence: CN)
  Receive Date: 20190121
  Receipt Date: 20190121
  Transmission Date: 20190417
  Serious: Yes (Hospitalization)
  Sender: FDA-Public Use
  Company Number: CN-PFIZER INC-2019023997

PATIENT
  Age: 65 Year
  Sex: Male

DRUGS (4)
  1. ADRENALINE [Suspect]
     Active Substance: EPINEPHRINE
     Indication: ANAPHYLACTIC REACTION
     Dosage: 0.3 MG, UNK
     Route: 058
  2. HYDROCORTISONE. [Concomitant]
     Active Substance: HYDROCORTISONE
     Dosage: UNK
     Route: 042
  3. TICAGRELOR. [Concomitant]
     Active Substance: TICAGRELOR
     Dosage: 180 MG, UNK
     Route: 058
  4. CLEXANE [Concomitant]
     Active Substance: ENOXAPARIN SODIUM
     Dosage: 6000 U
     Route: 058

REACTIONS (2)
  - Acute myocardial infarction [Recovering/Resolving]
  - Condition aggravated [Recovering/Resolving]
